FAERS Safety Report 25422222 (Version 1)
Quarter: 2025Q2

REPORT INFORMATION
  Report Type: Other
  Country: DE (occurrence: DE)
  Receive Date: 20250611
  Receipt Date: 20250611
  Transmission Date: 20250717
  Serious: Yes (Hospitalization, Other)
  Sender: MACLEODS
  Company Number: DE-EMA-DD-20250529-7482645-070502

PATIENT

DRUGS (4)
  1. CELECOXIB [Suspect]
     Active Substance: CELECOXIB
     Indication: Axial spondyloarthritis
     Dosage: 400 MILLIGRAM, QD
     Route: 065
     Dates: start: 20180405, end: 20200115
  2. CELECOXIB [Suspect]
     Active Substance: CELECOXIB
     Indication: Psoriatic arthropathy
     Route: 065
  3. ETORICOXIB [Suspect]
     Active Substance: ETORICOXIB
     Indication: Axial spondyloarthritis
     Dosage: CUMULATIVE DOSE TO FIRST REACTION: 10080 MILLIGRAM
     Route: 065
     Dates: start: 20171013, end: 20180405
  4. SIMPONI [Suspect]
     Active Substance: GOLIMUMAB
     Indication: Axial spondyloarthritis
     Dosage: SOLUTION FOR INJECTION IN PRE-FILLED PEN
     Route: 058
     Dates: start: 20171201

REACTIONS (4)
  - Viral upper respiratory tract infection [Unknown]
  - Appendicitis [Recovered/Resolved]
  - Nasopharyngitis [Unknown]
  - Pregnancy of partner [Recovered/Resolved]

NARRATIVE: CASE EVENT DATE: 20180201
